FAERS Safety Report 12932875 (Version 5)
Quarter: 2017Q1

REPORT INFORMATION
  Report Type: Spontaneous
  Country: US (occurrence: US)
  Receive Date: 20161111
  Receipt Date: 20170221
  Transmission Date: 20170428
  Serious: No
  Sender: FDA-Public Use
  Company Number: US-PFIZER INC-2016471963

PATIENT
  Age: 55 Year
  Sex: Female

DRUGS (3)
  1. IBRANCE [Suspect]
     Active Substance: PALBOCICLIB
     Dosage: 100 MG, CYCLIC (Q DAY X 21 DAYS, 7 DAYS OFF)
     Dates: start: 20161230
  2. IBRANCE [Suspect]
     Active Substance: PALBOCICLIB
     Dosage: 125 MG, CYCLIC (Q DAY X21 DAYS, 7 DAYS OFF)
     Dates: start: 20161007
  3. IBRANCE [Suspect]
     Active Substance: PALBOCICLIB
     Dosage: 125 MG, CYCLIC (Q DAY X21 DAYS, 7 DAYS OFF)
     Dates: start: 20161031

REACTIONS (2)
  - Malaise [Unknown]
  - Blood count abnormal [Unknown]
